FAERS Safety Report 23153042 (Version 1)
Quarter: 2023Q4

REPORT INFORMATION
  Report Type: Other
  Country: None (occurrence: US)
  Receive Date: 20231107
  Receipt Date: 20231107
  Transmission Date: 20240110
  Serious: Yes (Hospitalization, Other)
  Sender: FDA-Public Use
  Company Number: US-Omnivium Pharmaceuticals LLC-2147922

PATIENT
  Age: 54 Year
  Sex: Female

DRUGS (3)
  1. NUMBRINO [Suspect]
     Active Substance: COCAINE HYDROCHLORIDE
     Indication: Product used for unknown indication
     Route: 065
  2. HALOPERIDOL [Interacting]
     Active Substance: HALOPERIDOL
     Route: 065
  3. QUETIAPINE [Interacting]
     Active Substance: QUETIAPINE
     Route: 065

REACTIONS (3)
  - Neuroleptic malignant syndrome [Recovering/Resolving]
  - Haemophagocytic lymphohistiocytosis [Unknown]
  - Drug interaction [Unknown]
